FAERS Safety Report 19390568 (Version 1)
Quarter: 2021Q2

REPORT INFORMATION
  Report Type: Spontaneous
  Country: US (occurrence: US)
  Receive Date: 20210608
  Receipt Date: 20210608
  Transmission Date: 20210717
  Serious: Yes (Other)
  Sender: FDA-Public Use
  Company Number: US-GW PHARMA-202106USGW02740

PATIENT

DRUGS (2)
  1. EPIDIOLEX [Suspect]
     Active Substance: CANNABIDIOL
     Indication: PRODUCT USED FOR UNKNOWN INDICATION
     Dosage: 570 MILLIGRAM, BID
     Route: 048
     Dates: start: 202103, end: 2021
  2. EPIDIOLEX [Suspect]
     Active Substance: CANNABIDIOL
     Dosage: 600 MILLIGRAM, BID
     Route: 048
     Dates: start: 2021

REACTIONS (2)
  - Drug ineffective [Unknown]
  - Seizure [Unknown]

NARRATIVE: CASE EVENT DATE: 2021
